FAERS Safety Report 8764211 (Version 1)
Quarter: 2012Q4

REPORT INFORMATION
  Report Type: Report from Study
  Country: JP (occurrence: JP)
  Receive Date: 20120831
  Receipt Date: 20120831
  Transmission Date: 20130627
  Serious: Yes (Other)
  Sender: FDA-Public Use
  Company Number: JP-VERTEX PHARMACEUTICAL INC.-AE-2012-004793

PATIENT
  Age: 67 Year
  Sex: Female

DRUGS (6)
  1. VX-950 [Suspect]
     Indication: HEPATITIS C
     Dosage: 1500 mg, qd
     Route: 048
     Dates: start: 20120214, end: 20120215
  2. REBETOL [Suspect]
     Indication: HEPATITIS C
     Dosage: 400 mg, qd
     Route: 048
     Dates: start: 20120214, end: 20120215
  3. PEGINTERFERON ALFA-2B [Suspect]
     Indication: HEPATITIS C
     Dosage: 1.5 UNK, UNK
     Route: 058
     Dates: start: 20120214, end: 20120215
  4. LIVACT                             /00847901/ [Concomitant]
     Dosage: 8.30 g, qd
     Route: 048
  5. VOLTAREN                           /00372301/ [Concomitant]
     Dosage: 25 mg, qd
     Route: 051
     Dates: start: 20120214, end: 20120215
  6. PARIET [Concomitant]
     Dosage: 10 mg, qd
     Route: 048

REACTIONS (1)
  - Hypotension [Recovered/Resolved]
